FAERS Safety Report 9044908 (Version 1)
Quarter: 2013Q1

REPORT INFORMATION
  Report Type: Report from Study
  Country: JP (occurrence: JP)
  Receive Date: 20130130
  Receipt Date: 20130130
  Transmission Date: 20140127
  Serious: Yes (Other)
  Sender: FDA-Public Use
  Company Number: JP-GLAXOSMITHKLINE-B0860317A

PATIENT
  Age: 44 None
  Sex: Female

DRUGS (21)
  1. REVOLADE [Suspect]
     Indication: IDIOPATHIC THROMBOCYTOPENIC PURPURA
     Dosage: 12.5MG PER DAY
     Route: 048
     Dates: start: 20110113, end: 20110126
  2. REVOLADE [Suspect]
     Indication: IDIOPATHIC THROMBOCYTOPENIC PURPURA
     Dosage: 25MG PER DAY
     Route: 048
     Dates: start: 20110127
  3. SELBEX [Concomitant]
     Route: 048
  4. DIAZEPAM [Concomitant]
     Route: 048
  5. MERCAZOLE [Concomitant]
     Indication: BASEDOW^S DISEASE
     Route: 048
     Dates: end: 20110210
  6. ALLELOCK [Concomitant]
     Route: 048
  7. ADONA (AC-17) [Concomitant]
     Indication: IDIOPATHIC THROMBOCYTOPENIC PURPURA
     Route: 048
     Dates: end: 20110209
  8. TRANSAMIN [Concomitant]
     Indication: IDIOPATHIC THROMBOCYTOPENIC PURPURA
     Route: 048
     Dates: end: 20110209
  9. HICEE [Concomitant]
     Indication: IDIOPATHIC THROMBOCYTOPENIC PURPURA
     Route: 048
     Dates: end: 20110209
  10. TAKEPRON [Concomitant]
     Route: 048
  11. CEPHARANTHINE [Concomitant]
     Indication: IDIOPATHIC THROMBOCYTOPENIC PURPURA
     Route: 048
     Dates: end: 20110209
  12. PREDNISOLONE [Concomitant]
     Indication: IDIOPATHIC THROMBOCYTOPENIC PURPURA
     Route: 048
  13. HALCION [Concomitant]
     Route: 048
  14. ALOSENN [Concomitant]
     Route: 048
  15. DANAZOL [Concomitant]
     Indication: IDIOPATHIC THROMBOCYTOPENIC PURPURA
     Route: 048
  16. NEORAL [Concomitant]
     Indication: IDIOPATHIC THROMBOCYTOPENIC PURPURA
     Route: 048
  17. TALION [Concomitant]
     Route: 048
     Dates: start: 20110203, end: 20110210
  18. MERCAZOLE [Concomitant]
     Route: 048
     Dates: start: 20110211, end: 20110506
  19. MERCAZOLE [Concomitant]
     Route: 048
     Dates: start: 20110507, end: 20110616
  20. MERCAZOLE [Concomitant]
     Route: 048
     Dates: start: 20110617
  21. MAINTATE [Concomitant]
     Route: 048
     Dates: start: 20110217, end: 20110317

REACTIONS (2)
  - Basedow^s disease [Recovered/Resolved]
  - Pruritus [Recovered/Resolved]
